FAERS Safety Report 7240214-9 (Version None)
Quarter: 2011Q1

REPORT INFORMATION
  Report Type: 
  Country: None (occurrence: None)
  Receive Date: 20110124
  Receipt Date: 20110118
  Transmission Date: 20110831
  Serious: Yes (Other)
  Sender: FDA-Public Use
  Company Number: US-JNJFOC-20110105153

PATIENT
  Sex: Female

DRUGS (5)
  1. FENTANYL-100 [Suspect]
     Indication: ARTHRALGIA
     Route: 062
  2. SEROQUEL [Concomitant]
     Indication: DEPRESSION
     Route: 065
  3. DIABETES MEDICATION [Concomitant]
     Indication: DIABETES MELLITUS
     Route: 065
  4. TOPAMAX [Concomitant]
     Indication: CONVULSION
     Route: 065
  5. CELEXA [Concomitant]
     Indication: DEPRESSION
     Route: 048

REACTIONS (4)
  - ARTHRALGIA [None]
  - DIABETES MELLITUS [None]
  - WITHDRAWAL SYNDROME [None]
  - DRUG INEFFECTIVE [None]
